FAERS Safety Report 19833536 (Version 5)
Quarter: 2022Q3

REPORT INFORMATION
  Report Type: Report from Study
  Country: UG (occurrence: UG)
  Receive Date: 20210915
  Receipt Date: 20220718
  Transmission Date: 20221027
  Serious: Yes (Death, Congenital Anomaly, Other)
  Sender: FDA-Public Use
  Company Number: UG-MYLANLABS-2021M1061524

PATIENT

DRUGS (5)
  1. TENOFOVIR DISOPROXIL FUMARATE [Suspect]
     Active Substance: TENOFOVIR DISOPROXIL FUMARATE
     Indication: Prophylaxis against HIV infection
     Dosage: UNK
     Route: 048
     Dates: start: 20191011
  2. EMTRICITABINE\TENOFOVIR DISOPROXIL FUMARATE [Suspect]
     Active Substance: EMTRICITABINE\TENOFOVIR DISOPROXIL FUMARATE
     Indication: Prophylaxis against HIV infection
     Dosage: 500 MILLIGRAM, QD
     Route: 048
     Dates: start: 20210430
  3. TENOFOVIR [Suspect]
     Active Substance: TENOFOVIR
     Indication: Product used for unknown indication
     Dosage: 600 MILLIGRAM, QD
     Route: 058
     Dates: start: 20191115, end: 20210305
  4. MEBENDAZOLE [Suspect]
     Active Substance: MEBENDAZOLE
     Indication: Product used for unknown indication
     Dosage: UNK
     Route: 065
  5. LEVONORGESTREL [Suspect]
     Active Substance: LEVONORGESTREL
     Indication: Product used for unknown indication
     Dosage: UNK
     Route: 065

REACTIONS (4)
  - Exomphalos [Fatal]
  - Sepsis neonatal [Fatal]
  - Dehydration [Fatal]
  - Foetal exposure during pregnancy [Recovered/Resolved]
